FAERS Safety Report 5194467-1 (Version None)
Quarter: 2006Q4

REPORT INFORMATION
  Report Type: 
  Country: None (occurrence: None)
  Receive Date: 20061221
  Receipt Date: 20061205
  Transmission Date: 20070319
  Serious: Yes (Other)
  Sender: FDA-Public Use
  Company Number: 6027980

PATIENT
  Sex: Male

DRUGS (1)
  1. ISOTANE (ISOTRETINOIN) [Suspect]
     Indication: ACNE
     Dosage: 60,000 MG (60 MG, 1 IN 1 D), ORAL
     Route: 048

REACTIONS (3)
  - ARRHYTHMIA [None]
  - DIZZINESS [None]
  - SYNCOPE [None]
